FAERS Safety Report 11202116 (Version 27)
Quarter: 2019Q2

REPORT INFORMATION
  Report Type: Report from Study
  Country: CA (occurrence: CA)
  Receive Date: 20150619
  Receipt Date: 20190619
  Transmission Date: 20190711
  Serious: Yes (Hospitalization, Other)
  Sender: FDA-Public Use
  Company Number: PHHY2014CA079720

PATIENT
  Age: 58 Year
  Sex: Female

DRUGS (8)
  1. SANDOSTATIN [Suspect]
     Active Substance: OCTREOTIDE ACETATE
     Indication: NEUROENDOCRINE CARCINOMA
     Dosage: 100 UG, ONCE/SINGLE (TEST DOSE)
     Route: 058
     Dates: start: 20140620, end: 20140620
  2. SANDOSTATIN LAR DEPOT [Suspect]
     Active Substance: OCTREOTIDE ACETATE
     Indication: NEUROENDOCRINE CARCINOMA
     Dosage: 30 MG, QMO (EVERY 4 WEEKS)
     Route: 030
     Dates: start: 20140702
  3. SANDOSTATIN LAR DEPOT [Suspect]
     Active Substance: OCTREOTIDE ACETATE
     Dosage: 60 MG, QMO (EVERY 28 DAYS)
     Route: 030
     Dates: end: 20160113
  4. SANDOSTATIN LAR DEPOT [Suspect]
     Active Substance: OCTREOTIDE ACETATE
     Dosage: 60 MG, Q4W
     Route: 030
     Dates: start: 20190321
  5. SANDOSTATIN LAR DEPOT [Suspect]
     Active Substance: OCTREOTIDE ACETATE
     Dosage: 60 MG, BIW (EVERY 2 WEEKS)
     Route: 030
  6. SANDOSTATIN LAR DEPOT [Suspect]
     Active Substance: OCTREOTIDE ACETATE
     Dosage: 60 MG, QMO (EVERY 28 DAYS)
     Route: 030
     Dates: start: 20160115
  7. SANDOSTATIN LAR DEPOT [Suspect]
     Active Substance: OCTREOTIDE ACETATE
     Dosage: 60 MG, QMO (EVERY 28 DAYS)
     Route: 030
     Dates: start: 20160210
  8. COUMADIN [Concomitant]
     Active Substance: WARFARIN SODIUM
     Indication: PRODUCT USED FOR UNKNOWN INDICATION
     Route: 065

REACTIONS (25)
  - Gallbladder oedema [Unknown]
  - Abdominal pain [Recovered/Resolved]
  - Malignant neoplasm progression [Unknown]
  - Injection site fibrosis [Unknown]
  - Pyelonephritis [Unknown]
  - Mitral valve disease [Unknown]
  - Blood pressure diastolic increased [Unknown]
  - Gastrointestinal disorder [Unknown]
  - Injection site scar [Unknown]
  - Injection site pain [Unknown]
  - Cholecystitis [Unknown]
  - Inflammation [Recovered/Resolved]
  - Cholelithiasis [Unknown]
  - Blood pressure systolic increased [Unknown]
  - Intestinal obstruction [Recovered/Resolved]
  - Blood pressure increased [Unknown]
  - Administration site bruise [Unknown]
  - Incorrect dose administered [Unknown]
  - Needle issue [Unknown]
  - Lymphadenopathy [Unknown]
  - Tenderness [Unknown]
  - Tricuspid valve disease [Unknown]
  - Dysphonia [Unknown]
  - Platelet count decreased [Unknown]
  - Injection site haemorrhage [Unknown]

NARRATIVE: CASE EVENT DATE: 20140620
